FAERS Safety Report 13880570 (Version 1)
Quarter: 2017Q3

REPORT INFORMATION
  Report Type: Spontaneous
  Country: US (occurrence: None)
  Receive Date: 20170817
  Receipt Date: 20170817
  Transmission Date: 20171127
  Serious: Yes (Hospitalization)
  Sender: FDA-Public Use
  Company Number: None

PATIENT
  Age: 40 Year
  Sex: Male
  Weight: 76 kg

DRUGS (1)
  1. TAMSULOSINA [Suspect]
     Active Substance: TAMSULOSIN HYDROCHLORIDE
     Indication: TESTICULAR PAIN
     Dosage: ONCE A DAY ORALLY
     Route: 048

REACTIONS (5)
  - Rectal tenesmus [None]
  - Vision blurred [None]
  - Defaecation urgency [None]
  - Spontaneous penile erection [None]
  - Pain [None]

NARRATIVE: CASE EVENT DATE: 20170310
